FAERS Safety Report 5944286-0 (Version None)
Quarter: 2008Q4

REPORT INFORMATION
  Report Type: 
  Country: None (occurrence: None)
  Receive Date: 20081031
  Receipt Date: 20081017
  Transmission Date: 20090506
  Serious: Yes (Hospitalization, Other)
  Sender: FDA-Public Use
  Company Number: THYM-1000771

PATIENT
  Age: 12 Year
  Sex: Male
  Weight: 52.3 kg

DRUGS (1)
  1. THYMOGLOBULIN [Suspect]
     Indication: KIDNEY TRANSPLANT REJECTION
     Dosage: 75 MG, QD, INTRAVENOUS
     Route: 042
     Dates: start: 20080825, end: 20080826

REACTIONS (2)
  - HYPERGLYCAEMIA [None]
  - SERUM SICKNESS [None]
